FAERS Safety Report 15869444 (Version 1)
Quarter: 2019Q1

REPORT INFORMATION
  Report Type: Spontaneous
  Country: CH (occurrence: CH)
  Receive Date: 20190125
  Receipt Date: 20190125
  Transmission Date: 20190417
  Serious: Yes (Other)
  Sender: FDA-Public Use
  Company Number: PHHY2019CH002625

PATIENT
  Age: 48 Year
  Sex: Female

DRUGS (9)
  1. ZELBORAF [Suspect]
     Active Substance: VEMURAFENIB
     Indication: METASTASES TO LYMPH NODES
  2. TAFINLAR [Suspect]
     Active Substance: DABRAFENIB MESYLATE
     Indication: BRAF V600E MUTATION POSITIVE
  3. COTELLIC [Suspect]
     Active Substance: COBIMETINIB
     Indication: METASTASES TO LYMPH NODES
  4. MEKINIST [Suspect]
     Active Substance: TRAMETINIB DIMETHYL SULFOXIDE
     Indication: METASTASES TO LYMPH NODES
  5. COTELLIC [Suspect]
     Active Substance: COBIMETINIB
     Indication: MALIGNANT MELANOMA
     Dosage: 60 MG, QD
     Route: 065
     Dates: start: 20171218
  6. ZELBORAF [Suspect]
     Active Substance: VEMURAFENIB
     Indication: MALIGNANT MELANOMA
     Dosage: 960 MG, BID
     Route: 065
     Dates: start: 20171218
  7. TAFINLAR [Suspect]
     Active Substance: DABRAFENIB MESYLATE
     Indication: METASTASES TO LYMPH NODES
  8. MEKINIST [Suspect]
     Active Substance: TRAMETINIB DIMETHYL SULFOXIDE
     Indication: MALIGNANT MELANOMA
     Dosage: 2 MG, QD
     Route: 065
     Dates: start: 20171126
  9. TAFINLAR [Suspect]
     Active Substance: DABRAFENIB MESYLATE
     Indication: MALIGNANT MELANOMA
     Dosage: 175 MG, BID
     Route: 065
     Dates: start: 20171126

REACTIONS (7)
  - Pyrexia [Recovering/Resolving]
  - Leukopenia [Recovering/Resolving]
  - Stomatitis [Recovering/Resolving]
  - Tachycardia [Recovering/Resolving]
  - Cytokine release syndrome [Recovering/Resolving]
  - Rash macular [Recovering/Resolving]
  - Blister [Recovering/Resolving]
